FAERS Safety Report 5444086-4 (Version None)
Quarter: 2007Q3

REPORT INFORMATION
  Report Type: 
  Country: None (occurrence: None)
  Receive Date: 20070831
  Receipt Date: 20070815
  Transmission Date: 20080115
  Serious: Yes (Hospitalization, Disabling)
  Sender: FDA-Public Use
  Company Number: 07US000911

PATIENT
  Sex: Female

DRUGS (1)
  1. LITHIUM CARBONATE [Suspect]
     Indication: BIPOLAR I DISORDER
     Dosage: 600 MG, BID, ORAL
     Route: 048
     Dates: start: 19870101, end: 19870101

REACTIONS (2)
  - GENERALISED OEDEMA [None]
  - RASH [None]
